FAERS Safety Report 11129479 (Version 1)
Quarter: 2015Q2

REPORT INFORMATION
  Report Type: Spontaneous
  Country: US (occurrence: US)
  Receive Date: 20150521
  Receipt Date: 20150521
  Transmission Date: 20150821
  Serious: No
  Sender: FDA-Public Use
  Company Number: US-MALLINCKRODT-QSC-2014-0257

PATIENT
  Sex: Female
  Weight: 63.49 kg

DRUGS (4)
  1. H.P. ACTHAR [Suspect]
     Active Substance: CORTICOTROPIN
     Dosage: 80 UNITS, QD
     Route: 058
     Dates: start: 20140418
  2. H.P. ACTHAR [Suspect]
     Active Substance: CORTICOTROPIN
     Dosage: UNK, QD
     Dates: start: 201403, end: 201403
  3. H.P. ACTHAR [Suspect]
     Active Substance: CORTICOTROPIN
     Indication: MULTIPLE SCLEROSIS
     Dosage: 80 UNITS, QD
     Route: 058
     Dates: start: 201309, end: 2013
  4. H.P. ACTHAR [Suspect]
     Active Substance: CORTICOTROPIN
     Dosage: UNK, QD
     Dates: start: 201401, end: 2014

REACTIONS (9)
  - Acne [Recovering/Resolving]
  - Migraine [Not Recovered/Not Resolved]
  - Multiple sclerosis relapse [Not Recovered/Not Resolved]
  - Rash [Recovering/Resolving]
  - Faecal incontinence [Not Recovered/Not Resolved]
  - Scar [Unknown]
  - Fatigue [Not Recovered/Not Resolved]
  - Speech disorder [Recovered/Resolved]
  - Asthenia [Not Recovered/Not Resolved]

NARRATIVE: CASE EVENT DATE: 2013
